FAERS Safety Report 24679002 (Version 1)
Quarter: 2024Q4

REPORT INFORMATION
  Report Type: Spontaneous
  Country: US (occurrence: US)
  Receive Date: 20241129
  Receipt Date: 20241129
  Transmission Date: 20250114
  Serious: Yes (Other)
  Sender: SANOFI AVENTIS
  Company Number: US-SA-2024SA349864

PATIENT
  Age: 69 Year
  Sex: Female

DRUGS (1)
  1. DUPIXENT [Suspect]
     Active Substance: DUPILUMAB
     Indication: Pemphigoid
     Dosage: 300 MG, QW
     Route: 058
     Dates: start: 202206

REACTIONS (3)
  - Pemphigoid [Recovering/Resolving]
  - Condition aggravated [Recovering/Resolving]
  - Product use in unapproved indication [Unknown]

NARRATIVE: CASE EVENT DATE: 20220601
